FAERS Safety Report 18623810 (Version 1)
Quarter: 2020Q4

REPORT INFORMATION
  Report Type: Not Available
  Country: None (occurrence: None)
  Receive Date: 20201216
  Receipt Date: 20201216
  Transmission Date: 20210114
  Serious: No
  Sender: FDA-Public Use
  Company Number: US-AKORN-158074

PATIENT
  Sex: Female

DRUGS (1)
  1. MORPHINE SULFATE ORAL SOLUTION [Suspect]
     Active Substance: MORPHINE SULFATE

REACTIONS (1)
  - Vomiting [Unknown]
